FAERS Safety Report 15579610 (Version 1)
Quarter: 2018Q4

REPORT INFORMATION
  Report Type: Spontaneous
  Country: US (occurrence: US)
  Receive Date: 20181102
  Receipt Date: 20181102
  Transmission Date: 20190205
  Serious: Yes (Other)
  Sender: FDA-Public Use
  Company Number: US-COLLEGIUM PHARMACEUTICAL, INC.-2018CGM00331

PATIENT
  Sex: Male
  Weight: 113.38 kg

DRUGS (11)
  1. OXYCODONE IMMEDIATE RELEASE [Suspect]
     Active Substance: OXYCODONE
     Dosage: 60 MG, EVERY 6 HOURS
     Dates: start: 201807, end: 2018
  2. METFORMIN [Concomitant]
     Active Substance: METFORMIN HYDROCHLORIDE
     Dosage: 1000 MG, 2X/DAY
  3. OXYCODONE IMMEDIATE RELEASE [Suspect]
     Active Substance: OXYCODONE
     Dosage: 30 MG, 8X/DAY
     Dates: start: 2018
  4. DICLOFENAC [Concomitant]
     Active Substance: DICLOFENAC
     Dosage: UNK, AS NEEDED
  5. PHENERGAN [Concomitant]
     Active Substance: PROMETHAZINE HYDROCHLORIDE
  6. XTAMPZA ER [Suspect]
     Active Substance: OXYCODONE
     Indication: PAIN
     Dosage: 54 MG, 2X/DAY
     Route: 048
     Dates: start: 201807, end: 20180923
  7. XTAMPZA ER [Suspect]
     Active Substance: OXYCODONE
     Indication: PAIN
     Dosage: 72 MG, 2X/DAY
     Route: 048
     Dates: start: 20180924
  8. ATORVASTATIN [Concomitant]
     Active Substance: ATORVASTATIN
  9. FENTANYL. [Suspect]
     Active Substance: FENTANYL
  10. LISINOPRIL. [Concomitant]
     Active Substance: LISINOPRIL
  11. LYRICA [Concomitant]
     Active Substance: PREGABALIN

REACTIONS (8)
  - Therapeutic response shortened [Not Recovered/Not Resolved]
  - Vomiting [Not Recovered/Not Resolved]
  - Type 2 diabetes mellitus [Unknown]
  - Drug ineffective [Not Recovered/Not Resolved]
  - Withdrawal syndrome [Unknown]
  - Stress [Not Recovered/Not Resolved]
  - Drug effect delayed [Not Recovered/Not Resolved]
  - Product dose omission [Recovered/Resolved]

NARRATIVE: CASE EVENT DATE: 2018
